FAERS Safety Report 9557841 (Version 1)
Quarter: 2013Q3

REPORT INFORMATION
  Report Type: Spontaneous
  Country: CA (occurrence: CA)
  Receive Date: 20130926
  Receipt Date: 20130926
  Transmission Date: 20140515
  Serious: Yes (Hospitalization)
  Sender: FDA-Public Use
  Company Number: CA-JHP PHARMACEUTICALS, LLC-JHP201300566

PATIENT
  Sex: 0

DRUGS (1)
  1. ADRENALIN [Suspect]
     Dosage: 6 X THE RECOMMENDED/PRESCRIBED DOSE

REACTIONS (1)
  - Overdose [Recovered/Resolved]
